FAERS Safety Report 6999076-7 (Version None)
Quarter: 2010Q3

REPORT INFORMATION
  Report Type: 
  Country: None (occurrence: None)
  Receive Date: 20100920
  Receipt Date: 20100907
  Transmission Date: 20110219
  Serious: Yes (Hospitalization, Other)
  Sender: FDA-Public Use
  Company Number: DK-NOVOPROD-310271

PATIENT
  Age: 62 Year
  Sex: Female
  Weight: 82 kg

DRUGS (11)
  1. VICTOZA [Suspect]
     Indication: TYPE 2 DIABETES MELLITUS
     Dosage: 0.6 MG, QD
     Dates: start: 20100503
  2. VICTOZA [Suspect]
     Dosage: 1.2 MG, QD
  3. NOVOMIX 30 [Concomitant]
     Dosage: 22 IU, UNK
     Dates: end: 20100510
  4. MULTI-VITAMINS [Concomitant]
  5. BISACODYL [Concomitant]
     Dosage: 5 MG, UNK
  6. CALCIUM [Concomitant]
  7. BACLOFEN [Concomitant]
  8. TIZANIDINE HCL [Concomitant]
     Dosage: 12 MG, QD
  9. METFORMIN [Concomitant]
     Dosage: 2550 MG, UNK
  10. TELMISARTAN [Concomitant]
  11. ACETYLSALICYLIC ACID [Concomitant]
     Dosage: 75 MG, QD

REACTIONS (2)
  - GRAND MAL CONVULSION [None]
  - LOSS OF CONSCIOUSNESS [None]
